FAERS Safety Report 23269723 (Version 1)
Quarter: 2023Q4

REPORT INFORMATION
  Report Type: Spontaneous
  Country: DK (occurrence: DK)
  Receive Date: 20231207
  Receipt Date: 20231207
  Transmission Date: 20240109
  Serious: Yes (Hospitalization)
  Sender: FDA-Public Use
  Company Number: None

PATIENT
  Age: 42 Year
  Sex: Male
  Weight: 89 kg

DRUGS (7)
  1. IBUPROFEN ARISTO [Concomitant]
     Indication: Pain
     Dosage: 400 MG
     Route: 048
     Dates: start: 20201210, end: 20230531
  2. PANTOPRAZOLE SODIUM [Concomitant]
     Active Substance: PANTOPRAZOLE SODIUM
     Indication: Prophylaxis against gastrointestinal ulcer
     Dosage: 40 MG, QD
     Route: 048
     Dates: start: 20151012
  3. BETOLVEX [CYANOCOBALAMIN ZINC TANNATE] [Concomitant]
     Indication: Vitamin B12 deficiency
     Dosage: 1 MG, QD
     Route: 048
     Dates: start: 20180117
  4. TOLFENAMIC ACID [Concomitant]
     Active Substance: TOLFENAMIC ACID
     Indication: Migraine
     Dosage: 200 MG, BID
     Route: 048
     Dates: start: 20140723
  5. WEGOVY [Suspect]
     Active Substance: SEMAGLUTIDE
     Indication: Overweight
     Dosage: 1 MG, QW
     Route: 058
     Dates: start: 20230117
  6. WEGOVY [Suspect]
     Active Substance: SEMAGLUTIDE
     Dosage: 1.7 MG(DOSE INCREASED)
     Route: 058
     Dates: start: 20230627
  7. ACETAMINOPHEN [Concomitant]
     Active Substance: ACETAMINOPHEN
     Indication: Pain
     Dosage: 1000 MG(4 TIMES DAILY, STRENGTH: 500 MG   )
     Route: 048
     Dates: start: 20180314

REACTIONS (1)
  - Transient ischaemic attack [Not Recovered/Not Resolved]

NARRATIVE: CASE EVENT DATE: 20230525
